FAERS Safety Report 6860352-X (Version None)
Quarter: 2010Q3

REPORT INFORMATION
  Report Type: 
  Country: None (occurrence: None)
  Receive Date: 20100715
  Receipt Date: 20100702
  Transmission Date: 20110219
  Serious: Yes (Death, Hospitalization)
  Sender: FDA-Public Use
  Company Number: A-US2010-36345

PATIENT
  Age: 62 Year
  Sex: Female

DRUGS (2)
  1. TRACLEER [Suspect]
     Indication: PULMONARY ARTERIAL HYPERTENSION
     Dosage: ORAL
     Route: 048
     Dates: start: 20091112, end: 20100626
  2. CALCIUM CHANNEL BLOCKERS [Concomitant]

REACTIONS (3)
  - HYPERTENSION [None]
  - PULMONARY ARTERIAL HYPERTENSION [None]
  - TACHYCARDIA [None]
